FAERS Safety Report 14950171 (Version 2)
Quarter: 2018Q3

REPORT INFORMATION
  Report Type: Report from Study
  Country: JP (occurrence: JP)
  Receive Date: 20180530
  Receipt Date: 20180803
  Transmission Date: 20181010
  Serious: Yes (Hospitalization, Other)
  Sender: FDA-Public Use
  Company Number: JP-BRISTOL-MYERS SQUIBB COMPANY-BMS-2016-071234

PATIENT
  Age: 84 Year
  Sex: Female

DRUGS (2)
  1. NIVOLUMAB [Suspect]
     Active Substance: NIVOLUMAB
     Indication: MALIGNANT MELANOMA
     Dosage: 2 MG/KG, UNK
     Route: 042
     Dates: start: 20150929
  2. THYRADIN?S [Suspect]
     Active Substance: LEVOTHYROXINE
     Indication: MALIGNANT MELANOMA
     Route: 048

REACTIONS (3)
  - Thyroid function test abnormal [Recovered/Resolved]
  - Genital haemorrhage [Recovering/Resolving]
  - Diarrhoea [Recovered/Resolved]

NARRATIVE: CASE EVENT DATE: 20160112
